FAERS Safety Report 8821012 (Version 1)
Quarter: 2012Q4

REPORT INFORMATION
  Report Type: Report from Study
  Country: UG (occurrence: UG)
  Receive Date: 20121002
  Receipt Date: 20121002
  Transmission Date: 20130627
  Serious: Yes (Other)
  Sender: FDA-Public Use
  Company Number: UG-GILEAD-2012-0062195

PATIENT
  Sex: Female

DRUGS (3)
  1. EMTRICITABINE/TENOFOVIR DISOPROXIL FUMARATE [Suspect]
     Indication: PROPHYLAXIS AGAINST HIV INFECTION
     Dosage: UNK
     Dates: start: 20100302, end: 20120424
  2. PARACETAMOL [Concomitant]
     Dosage: UNK
     Dates: start: 20120328, end: 20120402
  3. VITAMIN B COMPLEX [Concomitant]
     Dosage: UNK
     Dates: start: 20120328, end: 20120411

REACTIONS (1)
  - Abortion spontaneous [Unknown]
